FAERS Safety Report 25636849 (Version 2)
Quarter: 2025Q3

REPORT INFORMATION
  Report Type: Spontaneous
  Country: US (occurrence: US)
  Receive Date: 20250804
  Receipt Date: 20250826
  Transmission Date: 20251020
  Serious: No
  Sender: ROCHE
  Company Number: US-ROCHE-10000350406

PATIENT
  Sex: Male

DRUGS (2)
  1. ACTEMRA ACTPEN [Suspect]
     Active Substance: TOCILIZUMAB
     Indication: Rheumatoid arthritis
     Dosage: STRENGTH: 162 MG/0.9M
     Route: 058
     Dates: start: 202507
  2. ENBREL [Concomitant]
     Active Substance: ETANERCEPT

REACTIONS (11)
  - Pain [Unknown]
  - Necrosis [Unknown]
  - Osteonecrosis of jaw [Unknown]
  - Speech disorder [Unknown]
  - Gastric ulcer [Unknown]
  - Crohn^s disease [Unknown]
  - Colitis ulcerative [Unknown]
  - Diverticulitis [Unknown]
  - Drug ineffective [Unknown]
  - Fibromyalgia [Unknown]
  - Renal disorder [Unknown]
